FAERS Safety Report 10550741 (Version 1)
Quarter: 2014Q4

REPORT INFORMATION
  Report Type: Spontaneous
  Country: US (occurrence: None)
  Receive Date: 20141028
  Receipt Date: 20141028
  Transmission Date: 20150529
  Serious: Yes (Hospitalization)
  Sender: FDA-Public Use
  Company Number: None

PATIENT
  Age: 61 Year
  Sex: Female
  Weight: 61.24 kg

DRUGS (15)
  1. DOXYCYCLINE. [Suspect]
     Active Substance: DOXYCYCLINE
     Indication: CELLULITIS
     Route: 048
     Dates: start: 20140516
  2. NATURE-THROID [Concomitant]
     Active Substance: THYROID, PORCINE
  3. HALCION [Concomitant]
     Active Substance: TRIAZOLAM
  4. FISH OIL [Concomitant]
     Active Substance: FISH OIL
  5. DOXYCYCLINE. [Suspect]
     Active Substance: DOXYCYCLINE
     Indication: STAPHYLOCOCCAL INFECTION
     Route: 048
     Dates: start: 20140516
  6. SUDATEN [Concomitant]
  7. MEDROL 2 MG [Concomitant]
  8. HALCION [Concomitant]
     Active Substance: TRIAZOLAM
  9. LASIX [Concomitant]
     Active Substance: FUROSEMIDE
  10. TYLENOL [Concomitant]
     Active Substance: ACETAMINOPHEN
  11. POTASSIUM [Concomitant]
     Active Substance: POTASSIUM
  12. IBUPROFEN. [Concomitant]
     Active Substance: IBUPROFEN
  13. ZYRTEC [Concomitant]
     Active Substance: CETIRIZINE HYDROCHLORIDE
  14. BENADRYL [Concomitant]
     Active Substance: DIPHENHYDRAMINE HYDROCHLORIDE
  15. D3 [Concomitant]
     Active Substance: 25-HYDROXYCHOLECALCIFEROL, 5-TRANS-

REACTIONS (8)
  - Rash [None]
  - Photosensitivity reaction [None]
  - Skin burning sensation [None]
  - Pruritus [None]
  - Staphylococcal infection [None]
  - Urticaria [None]
  - Joint swelling [None]
  - Erythema [None]

NARRATIVE: CASE EVENT DATE: 20140731
